FAERS Safety Report 8534405-4 (Version None)
Quarter: 2012Q3

REPORT INFORMATION
  Report Type: 
  Country: None (occurrence: None)
  Receive Date: 20120712
  Receipt Date: 20120629
  Transmission Date: 20120928
  Serious: Yes (Other)
  Sender: FDA-Public Use
  Company Number: 201207005

PATIENT
  Sex: Male
  Weight: 95.2554 kg

DRUGS (1)
  1. XIAFLEX [Suspect]
     Indication: DUPUYTREN'S CONTRACTURE
     Dosage: 1 IN 1 D, INTRALESIONAL
     Route: 026
     Dates: start: 20060101

REACTIONS (5)
  - NEUROPATHY PERIPHERAL [None]
  - DUPUYTREN'S CONTRACTURE [None]
  - PAIN IN EXTREMITY [None]
  - WEIGHT INCREASED [None]
  - DISEASE RECURRENCE [None]
